FAERS Safety Report 13973200 (Version 2)
Quarter: 2017Q4

REPORT INFORMATION
  Report Type: Spontaneous
  Country: JP (occurrence: JP)
  Receive Date: 20170915
  Receipt Date: 20171201
  Transmission Date: 20180321
  Serious: Yes (Death, Other)
  Sender: FDA-Public Use
  Company Number: JP-BAYER-2017-172727

PATIENT
  Age: 79 Year
  Sex: Male
  Weight: 53.7 kg

DRUGS (5)
  1. WARFARIN [Interacting]
     Active Substance: WARFARIN
     Indication: CARDIAC DISORDER
     Dosage: UNK
     Route: 048
  2. DIGOXIN [DIGOXIN] [Concomitant]
     Active Substance: DIGOXIN
     Indication: CARDIAC DISORDER
     Dosage: DAILY DOSE 0.125 MG
     Route: 048
  3. BAYASPIRIN 100 MG [Suspect]
     Active Substance: ASPIRIN
     Dosage: DAILY DOSE 1 DF
     Route: 048
  4. BLOPRESS [Concomitant]
     Active Substance: CANDESARTAN CILEXETIL
     Indication: HYPERTENSION
     Dosage: DAILY DOSE 4 MG
     Route: 048
  5. AMLODIN [Concomitant]
     Active Substance: AMLODIPINE BESYLATE
     Indication: HYPERTENSION
     Dosage: DAILY DOSE 5 MG
     Route: 048

REACTIONS (9)
  - Aphasia [Fatal]
  - Pupillary reflex impaired [Fatal]
  - Subdural haemorrhage [Fatal]
  - Drug interaction [None]
  - Drug administration error [None]
  - Unresponsive to stimuli [Fatal]
  - Haemorrhage intracranial [Fatal]
  - Hemiplegia [Fatal]
  - Coma [Fatal]

NARRATIVE: CASE EVENT DATE: 20140321
